FAERS Safety Report 23913338 (Version 2)
Quarter: 2024Q2

REPORT INFORMATION
  Report Type: Spontaneous
  Country: US (occurrence: US)
  Receive Date: 20240529
  Receipt Date: 20240611
  Transmission Date: 20240716
  Serious: Yes (Hospitalization, Other)
  Sender: FDA-Public Use
  Company Number: US-TEVA-VS-3201849

PATIENT
  Age: 57 Year
  Sex: Female

DRUGS (4)
  1. CAPECITABINE [Suspect]
     Active Substance: CAPECITABINE
     Indication: Hormone receptor negative HER2 positive breast cancer
     Route: 065
  2. TUCATINIB [Suspect]
     Active Substance: TUCATINIB
     Indication: Hormone receptor negative HER2 positive breast cancer
     Route: 065
  3. DENOSUMAB [Suspect]
     Active Substance: DENOSUMAB
     Indication: Hormone receptor negative HER2 positive breast cancer
     Route: 065
  4. TRASTUZUMAB DERUXTECAN [Suspect]
     Active Substance: TRASTUZUMAB DERUXTECAN
     Indication: Hormone receptor negative HER2 positive breast cancer
     Route: 065

REACTIONS (4)
  - Papillary thyroid cancer [Unknown]
  - Mastication disorder [Unknown]
  - Stomatitis [Unknown]
  - Weight decreased [Unknown]
